FAERS Safety Report 11316063 (Version 5)
Quarter: 2017Q3

REPORT INFORMATION
  Report Type: Report from Study
  Country: DE (occurrence: DE)
  Receive Date: 20150728
  Receipt Date: 20170720
  Transmission Date: 20171127
  Serious: Yes (Death, Life-Threatening, Hospitalization, Other)
  Sender: FDA-Public Use
  Company Number: PHHY2013DE076289

PATIENT
  Sex: Female
  Weight: 65 kg

DRUGS (15)
  1. DIGITOXIN [Concomitant]
     Active Substance: DIGITOXIN
     Indication: PRODUCT USED FOR UNKNOWN INDICATION
     Dosage: 1 DF, QD
     Route: 065
  2. NEBIVOLOL. [Concomitant]
     Active Substance: NEBIVOLOL
     Indication: PRODUCT USED FOR UNKNOWN INDICATION
     Dosage: 1 DF, QD
     Route: 065
  3. RAMIPRIL. [Concomitant]
     Active Substance: RAMIPRIL
     Indication: PRODUCT USED FOR UNKNOWN INDICATION
     Dosage: 1.5 DF, Q48H
     Route: 065
  4. NALOXONE W/TILIDINE [Concomitant]
     Active Substance: NALOXONE HYDROCHLORIDE\TILIDINE HYDROCHLORIDE
     Indication: PRODUCT USED FOR UNKNOWN INDICATION
     Dosage: 2 DF, QD
     Route: 065
  5. CARENAL [Concomitant]
     Indication: PRODUCT USED FOR UNKNOWN INDICATION
     Dosage: 1 DF, QD
     Route: 065
  6. XIPAMID AL [Concomitant]
     Indication: PRODUCT USED FOR UNKNOWN INDICATION
     Route: 065
  7. DIGITALIS [Concomitant]
     Active Substance: DIGITALIS
     Indication: PRODUCT USED FOR UNKNOWN INDICATION
     Route: 065
  8. SEEBRI BREEZHALER [Suspect]
     Active Substance: GLYCOPYRROLATE
     Indication: CHRONIC OBSTRUCTIVE PULMONARY DISEASE
     Dosage: 44 UG, QD
     Route: 055
     Dates: start: 20130613
  9. TORASEMID-RATIOPHARM [Concomitant]
     Active Substance: TORSEMIDE
     Indication: PRODUCT USED FOR UNKNOWN INDICATION
     Route: 065
  10. PANTOPRAZOLE [Concomitant]
     Active Substance: PANTOPRAZOLE
     Indication: PRODUCT USED FOR UNKNOWN INDICATION
     Dosage: 1 DF, QD
     Route: 065
  11. VERA LICH [Concomitant]
     Active Substance: VERAPAMIL HYDROCHLORIDE
     Indication: PRODUCT USED FOR UNKNOWN INDICATION
     Dosage: 80 MG, UNK
     Route: 065
  12. FORADIL [Suspect]
     Active Substance: FORMOTEROL FUMARATE
     Indication: CHRONIC OBSTRUCTIVE PULMONARY DISEASE
     Dosage: 3 DF, QD (HARD CAPSULES WITH POWER FOR INHALATION)
     Route: 055
  13. BUDESONIDE. [Concomitant]
     Active Substance: BUDESONIDE
     Indication: PRODUCT USED FOR UNKNOWN INDICATION
     Dosage: 2 DF, QD
     Route: 055
     Dates: start: 20121129
  14. PREDNISOLONE. [Concomitant]
     Active Substance: PREDNISOLONE
     Indication: CHRONIC OBSTRUCTIVE PULMONARY DISEASE
     Dosage: 0.5 DF, QOD
     Route: 065
     Dates: start: 20050613
  15. OSVAREN [Concomitant]
     Active Substance: CALCIUM ACETATE\MAGNESIUM CARBONATE
     Indication: PRODUCT USED FOR UNKNOWN INDICATION
     Dosage: 2 DF, TID
     Route: 065

REACTIONS (27)
  - Ventricular tachycardia [Fatal]
  - Hemiparesis [Not Recovered/Not Resolved]
  - Gastroenteritis clostridial [Not Recovered/Not Resolved]
  - Blood creatinine increased [Unknown]
  - Blood uric acid increased [Unknown]
  - Mitral valve incompetence [Unknown]
  - Tricuspid valve incompetence [Unknown]
  - Blood potassium increased [Unknown]
  - Cardiac failure [Fatal]
  - Cerebrovascular accident [Not Recovered/Not Resolved]
  - Blood cholesterol increased [Unknown]
  - Right ventricular systolic pressure increased [Unknown]
  - Cardiac arrest [Recovered/Resolved with Sequelae]
  - Blood parathyroid hormone increased [Unknown]
  - Shunt thrombosis [Unknown]
  - Ventricular fibrillation [Fatal]
  - Aphasia [Not Recovered/Not Resolved]
  - Arrhythmia [Unknown]
  - Blood iron increased [Unknown]
  - Syncope [Fatal]
  - Atrial fibrillation [Unknown]
  - Blood triglycerides increased [Unknown]
  - Pneumothorax [Fatal]
  - Pneumonia aspiration [Fatal]
  - Dysphagia [Not Recovered/Not Resolved]
  - Serum ferritin increased [Unknown]
  - Aortic valve stenosis [Unknown]

NARRATIVE: CASE EVENT DATE: 20130122
